FAERS Safety Report 13624470 (Version 5)
Quarter: 2019Q1

REPORT INFORMATION
  Report Type: Spontaneous
  Country: US (occurrence: US)
  Receive Date: 20170608
  Receipt Date: 20190221
  Transmission Date: 20190417
  Serious: Yes (Hospitalization)
  Sender: FDA-Public Use
  Company Number: US-BEH-2017081082

PATIENT
  Age: 50 Year
  Sex: Male
  Weight: 65.76 kg

DRUGS (47)
  1. RIFABUTIN. [Concomitant]
     Active Substance: RIFABUTIN
  2. ALBUTEROL                          /00139501/ [Concomitant]
     Active Substance: ALBUTEROL
  3. HEPARIN [Concomitant]
     Active Substance: HEPARIN SODIUM
  4. XANAX [Concomitant]
     Active Substance: ALPRAZOLAM
  5. ONDANSETRON [Concomitant]
     Active Substance: ONDANSETRON
  6. ZEMAIRA [Suspect]
     Active Substance: .ALPHA.1-PROTEINASE INHIBITOR HUMAN
     Dosage: UNK
     Route: 042
  7. FISH OIL W/VITAMIN D NOS [Concomitant]
  8. DIPHENHYDRAMINE. [Concomitant]
     Active Substance: DIPHENHYDRAMINE
  9. SODIUM CHLORIDE. [Concomitant]
     Active Substance: SODIUM CHLORIDE
  10. AMIKACIN. [Concomitant]
     Active Substance: AMIKACIN
  11. DALIRESP [Concomitant]
     Active Substance: ROFLUMILAST
  12. IBUPROFEN. [Concomitant]
     Active Substance: IBUPROFEN
  13. XOPENEX [Concomitant]
     Active Substance: LEVALBUTEROL HYDROCHLORIDE
  14. AZITHROMYCIN ANHYDROUS. [Concomitant]
     Active Substance: AZITHROMYCIN ANHYDROUS
  15. VITAMIN D3 [Concomitant]
     Active Substance: CHOLECALCIFEROL
  16. HYDROCODONE [Concomitant]
     Active Substance: HYDROCODONE
  17. BACTRIM [Concomitant]
     Active Substance: SULFAMETHOXAZOLE\TRIMETHOPRIM
  18. ZEMAIRA [Suspect]
     Active Substance: .ALPHA.1-PROTEINASE INHIBITOR HUMAN
     Dosage: UNK
     Route: 042
  19. PROBIOTIC                          /06395501/ [Concomitant]
     Active Substance: BIFIDOBACTERIUM ANIMALIS LACTIS
  20. CLOFAZIMINE [Concomitant]
     Active Substance: CLOFAZIMINE
  21. FLUTICASONE FUROATE [Concomitant]
     Active Substance: FLUTICASONE FUROATE
  22. LMX                                /00033401/ [Concomitant]
  23. HYDROCODONE BIT. AND HOMATROPINE METH. [Concomitant]
  24. ZEMAIRA [Suspect]
     Active Substance: .ALPHA.1-PROTEINASE INHIBITOR HUMAN
     Dosage: UNK
     Route: 042
     Dates: start: 20160519
  25. ZEMAIRA [Suspect]
     Active Substance: .ALPHA.1-PROTEINASE INHIBITOR HUMAN
     Dosage: UNK
     Route: 042
  26. PANTOPRAZOLE [Concomitant]
     Active Substance: PANTOPRAZOLE
  27. CEPHALEXIN                         /00145501/ [Concomitant]
     Active Substance: CEPHALEXIN
  28. ZEMAIRA [Suspect]
     Active Substance: .ALPHA.1-PROTEINASE INHIBITOR HUMAN
     Dosage: UNK
     Route: 042
  29. PREDNISONE. [Concomitant]
     Active Substance: PREDNISONE
  30. VITAMIN B6 [Concomitant]
     Active Substance: PYRIDOXINE HYDROCHLORIDE
  31. VITAMIN B12 [Concomitant]
     Active Substance: CYANOCOBALAMIN
  32. CATHFLO ACTIVASE [Concomitant]
     Active Substance: ALTEPLASE
  33. TESSALON [Concomitant]
     Active Substance: BENZONATATE
  34. DELSYM [Concomitant]
     Active Substance: DEXTROMETHORPHAN
  35. ANIDULAFUNGIN [Concomitant]
     Active Substance: ANIDULAFUNGIN
  36. TRAMADOL. [Concomitant]
     Active Substance: TRAMADOL
  37. STERILE WATER [Concomitant]
     Active Substance: WATER
  38. SPIRIVA [Concomitant]
     Active Substance: TIOTROPIUM BROMIDE MONOHYDRATE
  39. GABAPENTIN. [Concomitant]
     Active Substance: GABAPENTIN
  40. REMERON [Concomitant]
     Active Substance: MIRTAZAPINE
  41. ZEMAIRA [Suspect]
     Active Substance: .ALPHA.1-PROTEINASE INHIBITOR HUMAN
     Indication: ALPHA-1 ANTI-TRYPSIN DEFICIENCY
     Dosage: 60 MG/KG, UNK
     Route: 042
     Dates: start: 20160113
  42. ZEMAIRA [Suspect]
     Active Substance: .ALPHA.1-PROTEINASE INHIBITOR HUMAN
     Dosage: UNK
     Route: 042
  43. AVELOX [Concomitant]
     Active Substance: MOXIFLOXACIN HYDROCHLORIDE
  44. EPIPEN [Concomitant]
     Active Substance: EPINEPHRINE
  45. OXYGEN. [Concomitant]
     Active Substance: OXYGEN
  46. MORPHINE [Concomitant]
     Active Substance: MORPHINE
  47. CASPOFUNGIN ACETATE. [Concomitant]
     Active Substance: CASPOFUNGIN ACETATE

REACTIONS (7)
  - Aspergillus infection [Recovering/Resolving]
  - Fatigue [Recovering/Resolving]
  - Aspergillus infection [Recovering/Resolving]
  - Haemoptysis [Unknown]
  - Haemoptysis [Not Recovered/Not Resolved]
  - Haemoptysis [Recovered/Resolved]
  - Haemoptysis [Recovering/Resolving]

NARRATIVE: CASE EVENT DATE: 20170528
